FAERS Safety Report 25860206 (Version 1)
Quarter: 2025Q3

REPORT INFORMATION
  Report Type: Spontaneous
  Country: US (occurrence: None)
  Receive Date: 20250926
  Receipt Date: 20250926
  Transmission Date: 20251021
  Serious: No
  Sender: FDA-CTU
  Company Number: None

PATIENT
  Age: 95 Year
  Sex: Male

DRUGS (1)
  1. ERLEADA [Suspect]
     Active Substance: APALUTAMIDE
     Indication: Nasal polyps
     Dosage: 240 MG DAILY ORAL
     Route: 048
     Dates: start: 20250303, end: 20250822

REACTIONS (2)
  - Somnolence [None]
  - Hypophagia [None]

NARRATIVE: CASE EVENT DATE: 20250925
